FAERS Safety Report 24991958 (Version 1)
Quarter: 2025Q1

REPORT INFORMATION
  Report Type: Spontaneous
  Country: TR (occurrence: TR)
  Receive Date: 20250220
  Receipt Date: 20250220
  Transmission Date: 20250409
  Serious: Yes (Hospitalization, Other)
  Sender: OXFORD PHARMACEUTICALS, LLC
  Company Number: TR-Oxford Pharmaceuticals, LLC-2171479

PATIENT
  Age: 14 Year
  Sex: Female

DRUGS (1)
  1. AMLODIPINE BESYLATE [Suspect]
     Active Substance: AMLODIPINE BESYLATE
     Indication: Product used for unknown indication

REACTIONS (8)
  - Suicide attempt [Unknown]
  - Intentional overdose [Unknown]
  - Somnolence [Unknown]
  - Vomiting [Unknown]
  - Tremor [Unknown]
  - Hypotension [Unknown]
  - Toxicity to various agents [Unknown]
  - Anuria [Unknown]
